FAERS Safety Report 8416293 (Version 2)
Quarter: 2013Q1

REPORT INFORMATION
  Report Type: Spontaneous
  Country: None (occurrence: US)
  Receive Date: 20120218
  Receipt Date: 20130119
  Transmission Date: 20140127
  Serious: No
  Sender: FDA-Public Use
  Company Number: US-ALLERGAN-1116519US

PATIENT
  Age: 57 Year
  Sex: Male

DRUGS (1)
  1. BOTOX? [Suspect]
     Indication: PAIN
     Dosage: UNK (5-6 INJECTIONS ON EITHER SIDE OF NECK)
     Route: 030
     Dates: start: 201111, end: 201111

REACTIONS (7)
  - Chills [Recovered/Resolved]
  - Neck pain [Recovered/Resolved]
  - Back pain [Recovered/Resolved]
  - Pyrexia [Recovered/Resolved]
  - Injection site pain [Recovered/Resolved]
  - Contusion [Recovered/Resolved]
  - Drug ineffective [Unknown]
